FAERS Safety Report 11228560 (Version 1)
Quarter: 2015Q2

REPORT INFORMATION
  Report Type: Spontaneous
  Country: NO (occurrence: NO)
  Receive Date: 20150630
  Receipt Date: 20150630
  Transmission Date: 20150821
  Serious: Yes (Hospitalization)
  Sender: FDA-Public Use
  Company Number: NO-TEVA-573621ISR

PATIENT
  Age: 43 Year
  Sex: Female

DRUGS (2)
  1. REMICADE [Suspect]
     Active Substance: INFLIXIMAB
     Indication: ARTHRITIS
     Dosage: EVERY 6TH WEEK
     Route: 051
     Dates: start: 2008, end: 201502
  2. METHOTREXATE [Suspect]
     Active Substance: METHOTREXATE
     Indication: ARTHRITIS
     Route: 048
     Dates: start: 2007, end: 201502

REACTIONS (2)
  - Hepatic steatosis [Recovering/Resolving]
  - Iron overload [Recovering/Resolving]

NARRATIVE: CASE EVENT DATE: 201502
